FAERS Safety Report 7263997-0 (Version None)
Quarter: 2011Q1

REPORT INFORMATION
  Report Type: 
  Country: None (occurrence: None)
  Receive Date: 20110130
  Receipt Date: 20101101
  Transmission Date: 20110831
  Serious: No
  Sender: FDA-Public Use
  Company Number: US-ABBOTT-10P-163-0682762-00

PATIENT
  Age: 24 Year
  Sex: Female

DRUGS (8)
  1. PURINETHOL [Concomitant]
     Indication: CROHN'S DISEASE
  2. PREDNISONE [Concomitant]
     Indication: PRODUCT USED FOR UNKNOWN INDICATION
     Dosage: TAPER
  3. ALBUTEROL [Concomitant]
     Indication: ASTHMA
  4. TOPAMAX [Concomitant]
     Indication: MIGRAINE
  5. PLAQUENIL [Concomitant]
     Indication: ARTHRITIS ENTEROPATHIC
  6. IMITREX [Concomitant]
     Indication: MIGRAINE
  7. HUMIRA [Suspect]
     Indication: CROHN'S DISEASE
     Dates: start: 20100901, end: 20101017
  8. YASMIN [Concomitant]
     Indication: CONTRACEPTION

REACTIONS (13)
  - INJECTION SITE DISCOLOURATION [None]
  - DIARRHOEA [None]
  - ARTHROPATHY [None]
  - INJECTION SITE REACTION [None]
  - HEART RATE INCREASED [None]
  - INJECTION SITE ERYTHEMA [None]
  - INJECTION SITE URTICARIA [None]
  - DRUG INEFFECTIVE [None]
  - SYNCOPE [None]
  - CROHN'S DISEASE [None]
  - INJECTION SITE OEDEMA [None]
  - INJECTION SITE PRURITUS [None]
  - ABDOMINAL PAIN [None]
